FAERS Safety Report 4477702-4 (Version None)
Quarter: 2004Q4

REPORT INFORMATION
  Report Type: 
  Country: None (occurrence: None)
  Receive Date: 20041014
  Receipt Date: 20041012
  Transmission Date: 20050328
  Serious: No
  Sender: FDA-Public Use
  Company Number: A044-002-005249

PATIENT
  Age: 75 Year
  Sex: Male

DRUGS (2)
  1. ARICEPT [Suspect]
     Indication: DEMENTIA ALZHEIMER'S TYPE
     Dosage: 10 MG, 1 IN 1 D, ORAL
     Route: 048
     Dates: start: 20040820
  2. ASPIRIN [Suspect]
     Indication: ANGINA PECTORIS
     Dosage: 75 MG, ORAL
     Route: 048
     Dates: start: 20010301

REACTIONS (2)
  - DRUG INTERACTION [None]
  - GASTROINTESTINAL ULCER [None]
